FAERS Safety Report 23928432 (Version 1)
Quarter: 2024Q2

REPORT INFORMATION
  Report Type: Spontaneous
  Country: US (occurrence: US)
  Receive Date: 20240531
  Receipt Date: 20240531
  Transmission Date: 20240716
  Serious: No
  Sender: FDA-Public Use
  Company Number: US-RADIUS HEALTH INC.-2024US002796

PATIENT
  Sex: Female

DRUGS (4)
  1. TYMLOS [Suspect]
     Active Substance: ABALOPARATIDE
     Indication: Senile osteoporosis
     Dosage: 80 MICROGRAM, QD
     Route: 058
     Dates: start: 202402
  2. TYMLOS [Suspect]
     Active Substance: ABALOPARATIDE
     Indication: Bone disorder
  3. XDEMVY [Concomitant]
     Active Substance: LOTILANER
     Indication: Product used for unknown indication
  4. LINZESS [Concomitant]
     Active Substance: LINACLOTIDE
     Indication: Product used for unknown indication

REACTIONS (4)
  - Mood altered [Unknown]
  - Mass [Unknown]
  - Bone pain [Unknown]
  - Headache [Unknown]
